FAERS Safety Report 6699139-X (Version None)
Quarter: 2010Q2

REPORT INFORMATION
  Report Type: 
  Country: None (occurrence: None)
  Receive Date: 20100421
  Receipt Date: 20091102
  Transmission Date: 20101027
  Serious: Yes (Hospitalization)
  Sender: FDA-Public Use
  Company Number: APP200900727

PATIENT
  Age: 79 Year
  Sex: Female

DRUGS (1)
  1. HEPARIN SODIUM INJECTION [Suspect]
     Indication: CARDIAC OPERATION
     Dosage: SUBCUTANEOUS
     Route: 058
     Dates: start: 20040401, end: 20040401

REACTIONS (2)
  - DRUG HYPERSENSITIVITY [None]
  - PLATELET COUNT DECREASED [None]
